FAERS Safety Report 9985564 (Version 1)
Quarter: 2014Q1

REPORT INFORMATION
  Report Type: Spontaneous
  Country: US (occurrence: US)
  Receive Date: 20140307
  Receipt Date: 20140307
  Transmission Date: 20141002
  Serious: Yes (Hospitalization)
  Sender: FDA-Public Use
  Company Number: US-JNJFOC-20140300416

PATIENT
  Age: 6 Decade
  Sex: Female

DRUGS (1)
  1. INVOKANA [Suspect]
     Indication: TYPE 2 DIABETES MELLITUS
     Route: 048

REACTIONS (3)
  - Upper respiratory tract infection [Unknown]
  - Hypersensitivity [Unknown]
  - Pharyngeal oedema [Unknown]
